FAERS Safety Report 7499216-X (Version None)
Quarter: 2011Q2

REPORT INFORMATION
  Report Type: 
  Country: None (occurrence: None)
  Receive Date: 20110524
  Receipt Date: 20110512
  Transmission Date: 20111010
  Serious: Yes (Other)
  Sender: FDA-Public Use
  Company Number: US-JNJFOC-20110310749

PATIENT
  Sex: Female
  Weight: 70.31 kg

DRUGS (6)
  1. TRIAMCINOLONE [Suspect]
     Indication: PRODUCT USED FOR UNKNOWN INDICATION
     Route: 061
     Dates: start: 20090402, end: 20090514
  2. DIFLUCAN [Suspect]
     Indication: PRODUCT USED FOR UNKNOWN INDICATION
     Dosage: FOR 7 DAYS
     Route: 065
     Dates: start: 20090402, end: 20090409
  3. MICONAZOLE NITRATE [Suspect]
     Route: 061
  4. LASIX [Concomitant]
     Route: 065
  5. MICONAZOLE NITRATE [Suspect]
     Indication: RASH
     Route: 061
     Dates: start: 20090402, end: 20090409
  6. IBUPROFEN [Concomitant]
     Route: 065

REACTIONS (3)
  - RASH [None]
  - CONJUNCTIVITIS [None]
  - DRUG INEFFECTIVE [None]
